FAERS Safety Report 8600423-0 (Version None)
Quarter: 2012Q3

REPORT INFORMATION
  Report Type: 
  Country: None (occurrence: None)
  Receive Date: 20120808
  Receipt Date: 20120808
  Transmission Date: 20120928
  Serious: Yes (Other)
  Sender: FDA-Public Use
  Company Number: None

PATIENT
  Sex: Female

DRUGS (1)
  1. PROLIA [Suspect]
     Indication: OSTEOPOROSIS
     Dosage: 60 MG/ML 1 SC
     Route: 058
     Dates: start: 20120523

REACTIONS (2)
  - MYALGIA [None]
  - NO THERAPEUTIC RESPONSE [None]
